FAERS Safety Report 25235017 (Version 1)
Quarter: 2025Q2

REPORT INFORMATION
  Report Type: Spontaneous
  Country: KR (occurrence: KR)
  Receive Date: 20250424
  Receipt Date: 20250424
  Transmission Date: 20250716
  Serious: Yes (Other)
  Sender: MYLAN
  Company Number: KR-MYLANLABS-2025M1035475

PATIENT
  Sex: Male

DRUGS (4)
  1. ZELDOX [Suspect]
     Active Substance: ZIPRASIDONE
     Indication: Hallucination
     Dosage: 2 DOSAGE FORM, BID
  2. ZELDOX [Suspect]
     Active Substance: ZIPRASIDONE
     Dosage: 2 DOSAGE FORM, BID
     Route: 048
  3. ZELDOX [Suspect]
     Active Substance: ZIPRASIDONE
     Dosage: 2 DOSAGE FORM, BID
     Route: 048
  4. ZELDOX [Suspect]
     Active Substance: ZIPRASIDONE
     Dosage: 2 DOSAGE FORM, BID

REACTIONS (5)
  - Impulsive behaviour [Not Recovered/Not Resolved]
  - Bulimia nervosa [Not Recovered/Not Resolved]
  - Thirst [Not Recovered/Not Resolved]
  - Head titubation [Not Recovered/Not Resolved]
  - Extrapyramidal disorder [Not Recovered/Not Resolved]
